FAERS Safety Report 12860412 (Version 3)
Quarter: 2016Q4

REPORT INFORMATION
  Report Type: Spontaneous
  Country: JP (occurrence: JP)
  Receive Date: 20161019
  Receipt Date: 20161117
  Transmission Date: 20170207
  Serious: Yes (Death, Other)
  Sender: FDA-Public Use
  Company Number: JP-009507513-1610JPN001745

PATIENT
  Age: 79 Year
  Sex: Male
  Weight: 61 kg

DRUGS (4)
  1. CRAVIT [Suspect]
     Active Substance: LEVOFLOXACIN
     Indication: SEPTIC SHOCK
     Dosage: DAILY DOSAGE UNKNOWN
     Route: 041
     Dates: start: 20160927, end: 20160929
  2. MYSER (DIFLUPREDNATE) [Concomitant]
     Active Substance: DIFLUPREDNATE
     Indication: DRUG ERUPTION
     Route: 061
  3. CUBICIN [Suspect]
     Active Substance: DAPTOMYCIN
     Indication: SEPTIC SHOCK
     Dosage: 350 MG (5.7 MG/KG), QD
     Route: 041
     Dates: start: 20160927, end: 20160929
  4. MEROPENEM. [Concomitant]
     Active Substance: MEROPENEM
     Indication: SEPTIC SHOCK
     Dosage: DAILY DOSAGE UNKNOWN
     Route: 041
     Dates: start: 20160927, end: 20161004

REACTIONS (3)
  - Drug eruption [Unknown]
  - Septic shock [Fatal]
  - Multiple organ dysfunction syndrome [Fatal]

NARRATIVE: CASE EVENT DATE: 20160929
